FAERS Safety Report 25157509 (Version 2)
Quarter: 2025Q3

REPORT INFORMATION
  Report Type: Spontaneous
  Country: EU (occurrence: EU)
  Receive Date: 20250403
  Receipt Date: 20250806
  Transmission Date: 20251021
  Serious: Yes (Other)
  Sender: TEVA
  Company Number: None

PATIENT
  Age: 58 Year
  Sex: Male

DRUGS (1)
  1. ARIPIPRAZOLE [Suspect]
     Active Substance: ARIPIPRAZOLE
     Indication: Psychotic disorder
     Route: 065

REACTIONS (9)
  - Angina pectoris [Unknown]
  - Bradykinesia [Unknown]
  - Memory impairment [Unknown]
  - Headache [Unknown]
  - Mental impairment [Unknown]
  - Musculoskeletal stiffness [Unknown]
  - Tremor [Unknown]
  - Sluggishness [Unknown]
  - Dizziness [Unknown]
